FAERS Safety Report 15617126 (Version 2)
Quarter: 2018Q4

REPORT INFORMATION
  Report Type: Spontaneous
  Country: NL (occurrence: NL)
  Receive Date: 20181114
  Receipt Date: 20181121
  Transmission Date: 20190205
  Serious: Yes (Hospitalization)
  Sender: FDA-Public Use
  Company Number: NL-TEVA-2018-NL-975016

PATIENT
  Age: 72 Year
  Sex: Male
  Weight: 83.7 kg

DRUGS (8)
  1. HYDROCHLOROTHIAZIDE TABLET, 25 MG (MILLIGRAM) [Suspect]
     Active Substance: HYDROCHLOROTHIAZIDE
     Indication: HYPERTENSION
     Dosage: 25 MILLIGRAM DAILY; 1 TIME PER DAY
     Route: 065
     Dates: start: 2017, end: 20181002
  2. TIMOLOL OOGDRUPPELS [Concomitant]
     Dosage: 3DD1
     Dates: start: 2013
  3. IRBESARTAN 300 MG [Concomitant]
     Active Substance: IRBESARTAN
     Dosage: 1DD1
     Dates: start: 2018
  4. METFORMINE 500 MG [Concomitant]
     Dosage: 2DD1
     Dates: start: 2015
  5. HYLAN OOGDRUPPELS [Concomitant]
     Dosage: 2DD1
     Dates: start: 2017
  6. FENPROCOUMON 3 MG [Concomitant]
     Dates: start: 2013
  7. SPIRONOLACTON / TABLET, 25 MG (MILLIGRAM) [Suspect]
     Active Substance: SPIRONOLACTONE
     Indication: HYPERTENSION
     Dosage: 25 MILLIGRAM DAILY;
     Route: 065
     Dates: end: 20181002
  8. OMEPRAZOL MAAGSAPRESISTENTE TABLET, 40 MG (MILLIGRAM) [Suspect]
     Active Substance: OMEPRAZOLE
     Indication: ABDOMINAL DISCOMFORT
     Dosage: 1 TIME PER DAY
     Route: 065
     Dates: start: 2016, end: 20181002

REACTIONS (4)
  - Alkalosis hypochloraemic [Recovering/Resolving]
  - Hypomagnesaemia [Recovering/Resolving]
  - Hypocalcaemia [Recovering/Resolving]
  - Hypokalaemia [Recovering/Resolving]

NARRATIVE: CASE EVENT DATE: 20180103
